FAERS Safety Report 6508680-1 (Version None)
Quarter: 2009Q4

REPORT INFORMATION
  Report Type: 
  Country: None (occurrence: None)
  Receive Date: 20091221
  Receipt Date: 20090805
  Transmission Date: 20100525
  Serious: No
  Sender: FDA-Public Use
  Company Number: US-ASTRAZENECA-2009SE07027

PATIENT
  Sex: Female
  Weight: 97.5 kg

DRUGS (5)
  1. CRESTOR [Suspect]
     Route: 048
  2. ISASORBIDE [Concomitant]
  3. GLYBRIDE [Concomitant]
  4. HYZAAR [Concomitant]
  5. WARSARINE [Concomitant]

REACTIONS (1)
  - BLOOD CHOLESTEROL DECREASED [None]
